FAERS Safety Report 5298764-0 (Version None)
Quarter: 2007Q2

REPORT INFORMATION
  Report Type: 
  Country: None (occurrence: None)
  Receive Date: 20070417
  Receipt Date: 20070404
  Transmission Date: 20071010
  Serious: Yes (Other)
  Sender: FDA-Public Use
  Company Number: PHRM2007FR01222

PATIENT
  Age: 48 Year
  Sex: Male

DRUGS (5)
  1. CLOZAPINE [Suspect]
     Indication: SCHIZOPHRENIA
     Dosage: 400 MG PER DAY
     Route: 048
     Dates: start: 19920101
  2. LOXAPAC [Concomitant]
  3. LEPTICUR [Concomitant]
  4. MYOLASTAN [Concomitant]
  5. DAFLON [Concomitant]

REACTIONS (3)
  - LEUKOCYTOSIS [None]
  - LYMPHOCYTE COUNT INCREASED [None]
  - LYMPHOCYTIC LEUKAEMIA [None]
